FAERS Safety Report 6262419-6 (Version None)
Quarter: 2009Q3

REPORT INFORMATION
  Report Type: 
  Country: None (occurrence: None)
  Receive Date: 20090709
  Receipt Date: 20090629
  Transmission Date: 20100115
  Serious: Yes (Death, Other)
  Sender: FDA-Public Use
  Company Number: JP-ROCHE-641482

PATIENT
  Age: 11 Year
  Sex: Female

DRUGS (2)
  1. ISOTRETINOIN [Suspect]
     Indication: NEUROBLASTOMA
     Route: 065
  2. IRINOTECAN HCL [Suspect]
     Indication: NEUROBLASTOMA
     Route: 065

REACTIONS (3)
  - DISEASE PROGRESSION [None]
  - NEPHROPATHY TOXIC [None]
  - XERODERMA [None]
